FAERS Safety Report 8190088-7 (Version None)
Quarter: 2012Q1

REPORT INFORMATION
  Report Type: 
  Country: None (occurrence: None)
  Receive Date: 20120307
  Receipt Date: 20120307
  Transmission Date: 20120608
  Serious: Yes (Hospitalization)
  Sender: FDA-Public Use
  Company Number: None

PATIENT
  Sex: Male
  Weight: 125 kg

DRUGS (1)
  1. DABIGATRAN [Suspect]
     Indication: ATRIAL FIBRILLATION
     Dosage: 150 MG
     Route: 048
     Dates: start: 20110501, end: 20120301

REACTIONS (9)
  - VOMITING [None]
  - HAEMATURIA [None]
  - MELAENA [None]
  - NAUSEA [None]
  - HAEMATEMESIS [None]
  - DYSPNOEA [None]
  - ORTHOPNOEA [None]
  - HAEMOPTYSIS [None]
  - EPISTAXIS [None]
